FAERS Safety Report 9092212 (Version 1)
Quarter: 2013Q1

REPORT INFORMATION
  Report Type: Report from Study
  Country: US (occurrence: US)
  Receive Date: 20130201
  Receipt Date: 20130201
  Transmission Date: 20140127
  Serious: No
  Sender: FDA-Public Use
  Company Number: US-ABBOTT-12P-163-1027192-00

PATIENT
  Age: 20 Year
  Sex: Male

DRUGS (5)
  1. HUMIRA [Suspect]
     Indication: CROHN^S DISEASE
     Dosage: LOADING DOSE
     Dates: start: 20121224
  2. XANAX [Concomitant]
     Indication: PRODUCT USED FOR UNKNOWN INDICATION
  3. BACLOFEN [Concomitant]
     Indication: PRODUCT USED FOR UNKNOWN INDICATION
  4. PENTASA [Concomitant]
     Indication: PRODUCT USED FOR UNKNOWN INDICATION
  5. ENTOCORT [Concomitant]
     Indication: PRODUCT USED FOR UNKNOWN INDICATION
     Dosage: DAILY

REACTIONS (1)
  - Injection site pain [Recovering/Resolving]
